FAERS Safety Report 10021783 (Version 1)
Quarter: 2014Q1

REPORT INFORMATION
  Report Type: Spontaneous
  Country: US (occurrence: None)
  Receive Date: 20140318
  Receipt Date: 20140318
  Transmission Date: 20141002
  Serious: Yes (Life-Threatening, Hospitalization)
  Sender: FDA-Public Use
  Company Number: None

PATIENT
  Age: 70 Year
  Sex: Female
  Weight: 63.5 kg

DRUGS (2)
  1. MS CONTIN [Suspect]
     Indication: SPINAL COLUMN STENOSIS
     Route: 048
     Dates: start: 20140211, end: 20140314
  2. MS CONTIN [Suspect]
     Indication: PAIN
     Route: 048
     Dates: start: 20140211, end: 20140314

REACTIONS (6)
  - Accidental overdose [None]
  - Loss of consciousness [None]
  - Respiratory failure [None]
  - Pneumonia [None]
  - Sedation [None]
  - Drug tolerance decreased [None]
